FAERS Safety Report 14342803 (Version 1)
Quarter: 2018Q1

REPORT INFORMATION
  Report Type: Report from Study
  Country: JP (occurrence: JP)
  Receive Date: 20180102
  Receipt Date: 20180102
  Transmission Date: 20180509
  Serious: Yes (Death)
  Sender: FDA-Public Use
  Company Number: JP-UCBSA-2017053264

PATIENT
  Age: 70 Year
  Sex: Male
  Weight: 39 kg

DRUGS (4)
  1. LEVETIRACETAM. [Suspect]
     Active Substance: LEVETIRACETAM
     Indication: PROPHYLAXIS
     Dosage: 500 MG, 2X/DAY (BID)
     Route: 041
     Dates: start: 20170301, end: 20170304
  2. LEVETIRACETAM. [Suspect]
     Active Substance: LEVETIRACETAM
     Indication: OFF LABEL USE
     Dosage: 500 MG, ONCE DAILY (QD)
     Route: 041
     Dates: start: 20170305, end: 20170307
  3. E KEPPRA [Suspect]
     Active Substance: LEVETIRACETAM
     Indication: OFF LABEL USE
  4. E KEPPRA [Suspect]
     Active Substance: LEVETIRACETAM
     Indication: PROPHYLAXIS
     Dosage: 500 MG, 2X/DAY (BID)
     Route: 048
     Dates: start: 20170305

REACTIONS (3)
  - Death [Fatal]
  - Off label use [Unknown]
  - Inappropriate schedule of drug administration [Unknown]

NARRATIVE: CASE EVENT DATE: 20170301
